FAERS Safety Report 5245891-X (Version None)
Quarter: 2007Q1

REPORT INFORMATION
  Report Type: 
  Country: None (occurrence: None)
  Receive Date: 20070216
  Receipt Date: 20070202
  Transmission Date: 20070707
  Serious: Yes (Hospitalization)
  Sender: FDA-Public Use
  Company Number: 2007US000274

PATIENT
  Age: 58 Year
  Sex: Male

DRUGS (3)
  1. PROGRAF [Suspect]
     Indication: RENAL TRANSPLANT
     Dosage: 2 MG, BID, ORAL
     Route: 048
     Dates: start: 20050119
  2. MYCOPHENOLATE MOFETIL [Suspect]
     Indication: RENAL TRANSPLANT
     Dosage: 1000 MG, BID, ORAL
     Route: 048
     Dates: start: 20050119
  3. PREDNISONE [Suspect]
     Indication: RENAL TRANSPLANT
     Dosage: 2.5 MG, UID/QD, ORAL
     Route: 048
     Dates: start: 20050122

REACTIONS (1)
  - MENINGITIS CRYPTOCOCCAL [None]
